FAERS Safety Report 9365701 (Version 2)
Quarter: 2013Q3

REPORT INFORMATION
  Report Type: Spontaneous
  Country: IE (occurrence: IE)
  Receive Date: 20130625
  Receipt Date: 20130702
  Transmission Date: 20140515
  Serious: Yes (Death)
  Sender: FDA-Public Use
  Company Number: IE-BAYER-2013-075519

PATIENT
  Age: 27 Year
  Sex: Female

DRUGS (2)
  1. YASMIN [Suspect]
     Dosage: UNK
     Dates: start: 201101, end: 201103
  2. ORLISTAT [Suspect]
     Dosage: UNK
     Dates: start: 201101, end: 201103

REACTIONS (1)
  - Thrombosis [Fatal]
